FAERS Safety Report 8783532 (Version 1)
Quarter: 2012Q4

REPORT INFORMATION
  Report Type: 
  Country: JP (occurrence: JP)
  Receive Date: 20120913
  Receipt Date: 20120913
  Transmission Date: 20130627
  Serious: Yes (Other)
  Sender: FDA-Public Use
  Company Number: JP-MYLANLABS-2012S1018579

PATIENT
  Sex: Female

DRUGS (2)
  1. CARBOPLATIN [Suspect]
     Indication: GENITAL NEOPLASM MALIGNANT FEMALE
     Route: 065
  2. PACLITAXEL [Concomitant]
     Indication: GENITAL NEOPLASM MALIGNANT FEMALE
     Route: 065

REACTIONS (4)
  - Hypersensitivity [Unknown]
  - Hypotension [Unknown]
  - Dyspnoea [Unknown]
  - Oxygen saturation decreased [Unknown]
